FAERS Safety Report 11109309 (Version 1)
Quarter: 2015Q2

REPORT INFORMATION
  Report Type: Spontaneous
  Country: IT (occurrence: IT)
  Receive Date: 20150513
  Receipt Date: 20150513
  Transmission Date: 20150821
  Serious: Yes (Life-Threatening)
  Sender: FDA-Public Use
  Company Number: IT-TEVA-561805ACC

PATIENT
  Age: 48 Year
  Sex: Female

DRUGS (2)
  1. CEFAZOLINA TEVA - 1 G POLVERE E SOLVENTE PER SOLUZIONE INIETTABILE [Suspect]
     Active Substance: CEFAZOLIN SODIUM
     Indication: ANTIBIOTIC PROPHYLAXIS
     Dosage: 2 DF TOTAL; POWDER AND SOLVENT FOR SOLUTION FOR INJECTION
     Route: 042
     Dates: start: 20150420, end: 20150420
  2. BUPIVACAINA RECORDATI - 5MG/ML SOLUZIONE INIETTABILE IPERBARICA [Suspect]
     Active Substance: BUPIVACAINE
     Indication: ANAESTHESIA
     Dosage: 10 MG TOTAL
     Route: 029
     Dates: start: 20150420, end: 20150420

REACTIONS (4)
  - Erythema [Recovered/Resolved]
  - Sensation of foreign body [Recovered/Resolved]
  - Hypotension [Recovered/Resolved]
  - Tachycardia [Recovered/Resolved]

NARRATIVE: CASE EVENT DATE: 20150420
